FAERS Safety Report 13382944 (Version 3)
Quarter: 2017Q2

REPORT INFORMATION
  Report Type: Report from Study
  Country: US (occurrence: US)
  Receive Date: 20170329
  Receipt Date: 20170523
  Transmission Date: 20170830
  Serious: No
  Sender: FDA-Public Use
  Company Number: US-AMGEN-USASL2017046883

PATIENT
  Age: 85 Year
  Sex: Female
  Weight: 75.28 kg

DRUGS (6)
  1. CALCIUM WITH VITAMIN D [Concomitant]
     Active Substance: CALCIUM\VITAMIN D
     Dosage: 600 MG, BID
  2. FISH OIL [Concomitant]
     Active Substance: FISH OIL
     Dosage: UNK
  3. PROLIA [Suspect]
     Active Substance: DENOSUMAB
     Indication: OSTEOPOROSIS
  4. MECLIZINE [Concomitant]
     Active Substance: MECLIZINE HYDROCHLORIDE
     Dosage: 12.5 MG, P. R. N.
  5. PROLIA [Suspect]
     Active Substance: DENOSUMAB
     Indication: GASTROOESOPHAGEAL REFLUX DISEASE
     Dosage: UNK
     Route: 058
  6. PROLIA [Suspect]
     Active Substance: DENOSUMAB
     Indication: OSTEOPOROSIS POSTMENOPAUSAL
     Dosage: 60 MG, Q6MO
     Route: 058
     Dates: start: 20151006

REACTIONS (3)
  - Off label use [Unknown]
  - Diverticulum [Unknown]
  - Iron deficiency anaemia [Unknown]
